FAERS Safety Report 22114512 (Version 1)
Quarter: 2023Q1

REPORT INFORMATION
  Report Type: Spontaneous
  Country: None (occurrence: LU)
  Receive Date: 20230320
  Receipt Date: 20230320
  Transmission Date: 20230417
  Serious: Yes (Death, Hospitalization, Other)
  Sender: FDA-Public Use
  Company Number: LU-B.Braun Medical Inc.-2139260

PATIENT
  Age: 69 Year
  Sex: Male

DRUGS (3)
  1. ACETAMINOPHEN [Suspect]
     Active Substance: ACETAMINOPHEN
     Indication: Back pain
  2. IBUPROFEN [Concomitant]
     Active Substance: IBUPROFEN
  3. UNSPECIFIED INGREDIENT [Concomitant]
     Active Substance: UNSPECIFIED INGREDIENT

REACTIONS (18)
  - Drug ineffective [Fatal]
  - Clostridium difficile colitis [Fatal]
  - Urinary tract infection bacterial [Fatal]
  - Sacral pain [Fatal]
  - Back pain [Fatal]
  - Cholestasis [Fatal]
  - Hyperleukocytosis [Fatal]
  - Intervertebral discitis [Fatal]
  - Abdominal tenderness [Fatal]
  - Pyrexia [Fatal]
  - Systemic inflammatory response syndrome [Fatal]
  - Diabetes mellitus [Fatal]
  - Pneumonia [Fatal]
  - Somnolence [Fatal]
  - Pancreatitis acute [Fatal]
  - Fall [Fatal]
  - Hepatic enzyme increased [Fatal]
  - Acute kidney injury [Fatal]
